FAERS Safety Report 10449337 (Version 23)
Quarter: 2016Q2

REPORT INFORMATION
  Report Type: Report from Study
  Country: CA (occurrence: CA)
  Receive Date: 20140912
  Receipt Date: 20160504
  Transmission Date: 20160815
  Serious: Yes (Hospitalization, Other)
  Sender: FDA-Public Use
  Company Number: PHHY2013CA139100

PATIENT
  Age: 37 Year
  Sex: Female

DRUGS (9)
  1. SODIUM ACID PHOSPHATE [Concomitant]
     Indication: PRODUCT USED FOR UNKNOWN INDICATION
     Dosage: 500 MG, BID (FOR 3 DAYS) AT BEDTIME
     Route: 065
     Dates: start: 20150714
  2. SANDOSTATIN [Suspect]
     Active Substance: OCTREOTIDE ACETATE
     Indication: PANCREATIC NEUROENDOCRINE TUMOUR METASTATIC
     Dosage: 150 UG, ONCE/SINGLE (TEST DOSE)
     Route: 058
     Dates: start: 20131120, end: 20131120
  3. DESON//DEXAMETHASONE [Concomitant]
     Active Substance: DEXAMETHASONE
     Indication: PRODUCT USED FOR UNKNOWN INDICATION
     Dosage: FOR 5 DAYS
     Route: 065
     Dates: start: 20150714
  4. SANDOSTATIN LAR DEPOT [Suspect]
     Active Substance: OCTREOTIDE ACETATE
     Dosage: 30 MG, QMO (EVERY 4 WEEKS)
     Route: 030
     Dates: end: 20160323
  5. CIPRO [Concomitant]
     Active Substance: CIPROFLOXACIN HYDROCHLORIDE
     Indication: PRODUCT USED FOR UNKNOWN INDICATION
     Dosage: 500 MG, BID (FOR 7 DAYS)
     Route: 065
     Dates: start: 20150714
  6. SANDOSTATIN LAR DEPOT [Suspect]
     Active Substance: OCTREOTIDE ACETATE
     Indication: PANCREATIC NEUROENDOCRINE TUMOUR METASTATIC
     Dosage: 20 MG, QMO (EVERY 4 WEEKS)
     Route: 030
     Dates: start: 20131126
  7. CAPECITABINE. [Concomitant]
     Active Substance: CAPECITABINE
     Indication: PRODUCT USED FOR UNKNOWN INDICATION
     Dosage: 1500 MG, BID (FOR 14 DAYS)
     Route: 065
  8. TEMOZOLOMIDE. [Concomitant]
     Active Substance: TEMOZOLOMIDE
     Indication: PRODUCT USED FOR UNKNOWN INDICATION
     Dosage: 400 MG, ON DAY 10 TO 14 IN EVENING
     Route: 065
  9. AFINITOR [Suspect]
     Active Substance: EVEROLIMUS
     Indication: PANCREATIC NEUROENDOCRINE TUMOUR METASTATIC
     Dosage: 10 MG, QD (DAILY)
     Route: 048
     Dates: end: 2015

REACTIONS (32)
  - Pain in extremity [Unknown]
  - Malignant neoplasm progression [Unknown]
  - Fluid retention [Unknown]
  - Rhinorrhoea [Unknown]
  - Nasopharyngitis [Unknown]
  - Pyrexia [Recovered/Resolved]
  - Nausea [Not Recovered/Not Resolved]
  - Hypercalcaemia [Not Recovered/Not Resolved]
  - Ascites [Unknown]
  - Cough [Not Recovered/Not Resolved]
  - Discomfort [Unknown]
  - Diarrhoea [Unknown]
  - Injection site mass [Unknown]
  - Jaundice [Unknown]
  - Needle issue [Unknown]
  - Hypertension [Unknown]
  - Dysuria [Unknown]
  - Body temperature decreased [Unknown]
  - Asthenia [Unknown]
  - No therapeutic response [Unknown]
  - Stress [Unknown]
  - Yellow skin [Unknown]
  - Arthralgia [Unknown]
  - Metastases to central nervous system [Unknown]
  - Localised intraabdominal fluid collection [Unknown]
  - Malaise [Unknown]
  - Liver function test increased [Unknown]
  - Parathyroid disorder [Unknown]
  - Oropharyngeal pain [Unknown]
  - Fatigue [Unknown]
  - Muscle spasms [Unknown]
  - Muscular weakness [Unknown]

NARRATIVE: CASE EVENT DATE: 20140611
